FAERS Safety Report 17067333 (Version 2)
Quarter: 2020Q3

REPORT INFORMATION
  Report Type: Spontaneous
  Country: ES (occurrence: ES)
  Receive Date: 20191122
  Receipt Date: 20200904
  Transmission Date: 20201102
  Serious: Yes (Other)
  Sender: FDA-Public Use
  Company Number: ES-MYLANLABS-2019M1112790

PATIENT
  Age: 59 Year
  Sex: Male

DRUGS (6)
  1. BROMAZEPAM [Concomitant]
     Active Substance: BROMAZEPAM
     Dosage: UNK (CHRONIC MEDICATIONS)
  2. GEMCITABINE. [Suspect]
     Active Substance: GEMCITABINE
     Indication: LUNG SQUAMOUS CELL CARCINOMA STAGE II
     Dosage: (1840 MG) INFUSED OVER 30 MINUTES
  3. CISPLATIN. [Concomitant]
     Active Substance: CISPLATIN
     Indication: LUNG SQUAMOUS CELL CARCINOMA STAGE II
     Dosage: UNK UNK, CYCLE
  4. NPH INSULIN [Concomitant]
     Active Substance: INSULIN BEEF
     Dosage: UNK (CHRONIC MEDICATIONS)
  5. VINORELBINE [Concomitant]
     Active Substance: VINORELBINE TARTRATE
     Indication: LUNG SQUAMOUS CELL CARCINOMA STAGE II
     Dosage: UNK UNK, CYCLE
  6. PENTOXIFYLLINE. [Concomitant]
     Active Substance: PENTOXIFYLLINE
     Dosage: UNK (CHRONIC MEDICATIONS)

REACTIONS (1)
  - Linear IgA disease [Recovered/Resolved]
